FAERS Safety Report 5430351-3 (Version None)
Quarter: 2007Q3

REPORT INFORMATION
  Report Type: 
  Country: None (occurrence: None)
  Receive Date: 20070828
  Receipt Date: 20070821
  Transmission Date: 20080115
  Serious: Yes (Death, Other)
  Sender: FDA-Public Use
  Company Number: 163-20785-07070442

PATIENT
  Age: 87 Year
  Sex: Male

DRUGS (11)
  1. THALOMID [Suspect]
     Indication: MULTIPLE MYELOMA
     Dosage: 50 MG, 1 IN 1 D, ORAL
     Route: 048
     Dates: start: 20070117, end: 20070612
  2. LASIX [Concomitant]
  3. LISINOPRIL [Concomitant]
  4. FLOMAX [Concomitant]
  5. DOXAZOSIN (DOXAZOSIN) [Concomitant]
  6. REMERON [Concomitant]
  7. AMBIEN [Concomitant]
  8. ACIPHEX [Concomitant]
  9. PLAVIX [Concomitant]
  10. CITALOPRAM HYDROBROMIDE [Concomitant]
  11. HYDROCODONE BITARTRATE [Concomitant]

REACTIONS (3)
  - BRAIN CANCER METASTATIC [None]
  - LOSS OF CONSCIOUSNESS [None]
  - MENTAL STATUS CHANGES [None]
